FAERS Safety Report 16121290 (Version 1)
Quarter: 2019Q1

REPORT INFORMATION
  Report Type: Spontaneous
  Country: IT (occurrence: IT)
  Receive Date: 20190327
  Receipt Date: 20190327
  Transmission Date: 20190418
  Serious: Yes (Hospitalization)
  Sender: FDA-Public Use
  Company Number: IT-ACCORD-115682

PATIENT
  Age: 68 Year
  Sex: Female

DRUGS (3)
  1. GEMCITABINE/GEMCITABINE HYDROCHLORIDE [Suspect]
     Active Substance: GEMCITABINE\GEMCITABINE HYDROCHLORIDE
     Indication: RECTAL CANCER
     Route: 042
     Dates: start: 20180801, end: 20181123
  2. ABSTRAL [Concomitant]
     Active Substance: FENTANYL CITRATE
  3. ARANESP [Concomitant]
     Active Substance: DARBEPOETIN ALFA
     Dosage: STRENGTH 60 MICROGRAMS

REACTIONS (3)
  - Off label use [Unknown]
  - Abdominal pain [Recovering/Resolving]
  - Diarrhoea [Recovering/Resolving]

NARRATIVE: CASE EVENT DATE: 20181124
